FAERS Safety Report 19620095 (Version 1)
Quarter: 2021Q3

REPORT INFORMATION
  Report Type: Spontaneous
  Country: US (occurrence: US)
  Receive Date: 20210723
  Receipt Date: 20210723
  Transmission Date: 20211014
  Serious: Yes (Hospitalization)
  Sender: FDA-Public Use
  Company Number: None

PATIENT

DRUGS (1)
  1. LEAF THERAPEUTICS CBD SLEEP BLEND (DIETARY SUPPLEMENT\HEMP) [Suspect]
     Active Substance: DIETARY SUPPLEMENT\HEMP
     Route: 048
     Dates: start: 20210706, end: 20210706

REACTIONS (2)
  - Feeling hot [None]
  - Urticaria [None]

NARRATIVE: CASE EVENT DATE: 20210706
